FAERS Safety Report 25395480 (Version 6)
Quarter: 2025Q3

REPORT INFORMATION
  Report Type: Spontaneous
  Country: US (occurrence: US)
  Receive Date: 20250604
  Receipt Date: 20250915
  Transmission Date: 20251020
  Serious: Yes (Death, Other)
  Sender: ALEXION PHARMACEUTICALS
  Company Number: US-AstraZeneca-CH-00880577A

PATIENT
  Age: 9 Month
  Sex: Male
  Weight: 7.5 kg

DRUGS (2)
  1. SOLIRIS [Suspect]
     Active Substance: ECULIZUMAB
     Indication: Thrombotic microangiopathy
  2. VITAMIN K [Concomitant]
     Active Substance: PHYTONADIONE
     Indication: Coagulopathy
     Route: 065

REACTIONS (27)
  - Multiple organ dysfunction syndrome [Fatal]
  - Pulmonary haemorrhage [Unknown]
  - Shock haemorrhagic [Unknown]
  - Cholestasis [Unknown]
  - Intra-abdominal haemorrhage [Unknown]
  - Renal tubular necrosis [Unknown]
  - Intestinal perforation [Unknown]
  - Renal failure [Unknown]
  - Thrombotic microangiopathy [Unknown]
  - Hepatic fibrosis [Unknown]
  - Hypoxic-ischaemic encephalopathy [Unknown]
  - Splenic infarction [Unknown]
  - Hepatic necrosis [Unknown]
  - Haemorrhage coronary artery [Unknown]
  - Appendicitis perforated [Unknown]
  - Haemoperitoneum [Unknown]
  - Portal hypertension [Unknown]
  - Duodenal perforation [Unknown]
  - Candida infection [Unknown]
  - Vascular pseudoaneurysm [Unknown]
  - Calcinosis [Unknown]
  - Anorectal varices [Unknown]
  - Haemodynamic instability [Unknown]
  - Ischaemia [Unknown]
  - Blood lactic acid increased [Unknown]
  - Haemorrhage [Unknown]
  - Haematoma [Unknown]

NARRATIVE: CASE EVENT DATE: 20241122
